FAERS Safety Report 12092120 (Version 2)
Quarter: 2016Q3

REPORT INFORMATION
  Report Type: Report from Study
  Country: US (occurrence: MX)
  Receive Date: 20160219
  Receipt Date: 20160812
  Transmission Date: 20161109
  Serious: Yes (Other)
  Sender: FDA-Public Use
  Company Number: US-AMGEN-MEXSP2016019186

PATIENT
  Age: 59 Year
  Sex: Female

DRUGS (1)
  1. ENBREL [Suspect]
     Active Substance: ETANERCEPT
     Indication: RHEUMATOID ARTHRITIS
     Dosage: 50 MG, QWK
     Route: 065
     Dates: start: 1998

REACTIONS (9)
  - Allergy to arthropod bite [Not Recovered/Not Resolved]
  - Impaired healing [Unknown]
  - Anaphylactic shock [Unknown]
  - Loss of consciousness [Unknown]
  - Immune system disorder [Unknown]
  - Injection site discomfort [Unknown]
  - Injection site pruritus [Unknown]
  - Musculoskeletal discomfort [Not Recovered/Not Resolved]
  - Skin ulcer [Unknown]

NARRATIVE: CASE EVENT DATE: 2016
